FAERS Safety Report 7001407-9 (Version None)
Quarter: 2010Q3

REPORT INFORMATION
  Report Type: 
  Country: None (occurrence: None)
  Receive Date: 20100920
  Receipt Date: 20100721
  Transmission Date: 20110219
  Serious: No
  Sender: FDA-Public Use
  Company Number: US-ASTRAZENECA-2009SE24123

PATIENT
  Age: 44 Year
  Sex: Male
  Weight: 112.5 kg

DRUGS (9)
  1. SEROQUEL [Suspect]
     Indication: SCHIZOPHRENIA
     Dosage: 200-400 MG
     Route: 048
     Dates: start: 20001206, end: 20030904
  2. GEODON [Concomitant]
     Dates: start: 20061219, end: 20070404
  3. HALDOL [Concomitant]
     Dates: start: 19940101
  4. RISPERDAL [Concomitant]
     Dates: start: 20031020, end: 20090308
  5. ZYPREXA [Concomitant]
     Dates: start: 20000101
  6. WELLBUTRIN [Concomitant]
     Dates: start: 20070919, end: 20090409
  7. PROZAC [Concomitant]
     Dosage: 20-40 MG
     Dates: start: 20010619, end: 20090308
  8. ZOLOFT [Concomitant]
     Dates: start: 20030804, end: 20031211
  9. TRAZODONE HCL [Concomitant]
     Dosage: 50-100MG
     Dates: start: 20080126, end: 20080905

REACTIONS (3)
  - OBESITY [None]
  - TYPE 2 DIABETES MELLITUS [None]
  - WEIGHT INCREASED [None]
